FAERS Safety Report 17639253 (Version 1)
Quarter: 2020Q2

REPORT INFORMATION
  Report Type: Spontaneous
  Country: BR (occurrence: BR)
  Receive Date: 20200407
  Receipt Date: 20200407
  Transmission Date: 20200713
  Serious: Yes (Other)
  Sender: FDA-Public Use
  Company Number: BR-SA-2019SA224401

PATIENT
  Age: 39 Year
  Sex: Male
  Weight: 58 kg

DRUGS (2)
  1. AGALSIDASE BETA [Suspect]
     Active Substance: AGALSIDASE BETA
     Dosage: UNK
  2. AGALSIDASE BETA [Suspect]
     Active Substance: AGALSIDASE BETA
     Indication: FABRY^S DISEASE
     Dosage: 2 DF, QOW
     Route: 041
     Dates: start: 20030401

REACTIONS (8)
  - Oedema mouth [Unknown]
  - Hypersensitivity [Unknown]
  - Respiratory tract oedema [Unknown]
  - Myocardial fibrosis [Unknown]
  - Tachycardia [Unknown]
  - Product dose omission [Unknown]
  - Face oedema [Unknown]
  - Anaphylactic reaction [Unknown]

NARRATIVE: CASE EVENT DATE: 2016
